FAERS Safety Report 9226104 (Version 1)
Quarter: 2013Q2

REPORT INFORMATION
  Report Type: Spontaneous
  Country: US (occurrence: US)
  Receive Date: 20130411
  Receipt Date: 20130411
  Transmission Date: 20140414
  Serious: Yes (Other)
  Sender: FDA-Public Use
  Company Number: CHPA2013US005983

PATIENT
  Age: 82 Year
  Sex: Female

DRUGS (3)
  1. EXCEDRIN TENSION HEADACHE [Suspect]
     Indication: SINUS DISORDER
     Dosage: 1 DF, QD (IN AM)
     Route: 048
     Dates: end: 2012
  2. EXCEDRIN TENSION HEADACHE [Suspect]
     Indication: MYALGIA
     Dosage: 1 DF, OCCASIONALLY IN AFTERNOON
     Route: 048
  3. EXCEDRIN EXTRA STRENGTH [Suspect]
     Indication: PAIN
     Dosage: UNK, UNK
     Route: 048

REACTIONS (1)
  - Fall [Recovered/Resolved]
